FAERS Safety Report 18103903 (Version 11)
Quarter: 2020Q4

REPORT INFORMATION
  Report Type: Report from Study
  Country: US (occurrence: US)
  Receive Date: 20200803
  Receipt Date: 20201015
  Transmission Date: 20210113
  Serious: Yes (Hospitalization, Other)
  Sender: FDA-Public Use
  Company Number: US-PFIZER INC-2020289764

PATIENT
  Age: 52 Year
  Sex: Female
  Weight: 90.25 kg

DRUGS (12)
  1. TYVASO [Suspect]
     Active Substance: TREPROSTINIL
     Indication: PULMONARY ARTERIAL HYPERTENSION
     Dosage: 18-54 UG, (3-9 BREATHS) QID(FOUR TIMES A DAY)
     Route: 055
     Dates: start: 20110920
  2. IPRATROPIUM [Concomitant]
     Active Substance: IPRATROPIUM
     Dosage: UNK
     Dates: start: 202007
  3. TUMS [Suspect]
     Active Substance: CALCIUM CARBONATE
     Dosage: UNK
  4. TYVASO [Suspect]
     Active Substance: TREPROSTINIL
     Dosage: 18-54 UG, 4X/DAY(QID)
     Route: 055
     Dates: start: 202007
  5. TYVASO [Suspect]
     Active Substance: TREPROSTINIL
     Dosage: 54 UG, (9 BREATHS) QID (FOUR TIMES A DAY)
     Route: 055
  6. TYVASO [Suspect]
     Active Substance: TREPROSTINIL
     Dosage: 18-54 UG, 4X/DAY(QID)
     Route: 055
     Dates: start: 20110920
  7. TYVASO [Suspect]
     Active Substance: TREPROSTINIL
     Dosage: 3 BREATHS
     Route: 055
     Dates: start: 202007
  8. PEPCID [Suspect]
     Active Substance: FAMOTIDINE
     Dosage: UNK
  9. SALBUTAMOL SULPHATE [Concomitant]
     Active Substance: ALBUTEROL SULFATE
     Dosage: UNK
     Dates: start: 202007
  10. REVATIO [Suspect]
     Active Substance: SILDENAFIL CITRATE
     Dosage: UNK
  11. AMBRISENTAN [Suspect]
     Active Substance: AMBRISENTAN
     Indication: PULMONARY ARTERIAL HYPERTENSION
     Dosage: 10 MG, 1X/DAY
     Route: 048
     Dates: start: 20190925
  12. XANAX [Concomitant]
     Active Substance: ALPRAZOLAM
     Dosage: UNK

REACTIONS (47)
  - Toothache [Unknown]
  - Pain in extremity [Unknown]
  - Fungal infection [Not Recovered/Not Resolved]
  - Secretion discharge [Unknown]
  - Foreign body in throat [Unknown]
  - Anxiety [Unknown]
  - Skin burning sensation [Unknown]
  - Oropharyngeal discomfort [Unknown]
  - Fatigue [Unknown]
  - Abscess [Unknown]
  - Pain in extremity [Unknown]
  - Pollakiuria [Not Recovered/Not Resolved]
  - Infection [Not Recovered/Not Resolved]
  - Stomatitis [Not Recovered/Not Resolved]
  - Pain [Unknown]
  - Feeling abnormal [Not Recovered/Not Resolved]
  - Tooth infection [Unknown]
  - Cough [Not Recovered/Not Resolved]
  - Bronchospasm [Not Recovered/Not Resolved]
  - Paraesthesia [Not Recovered/Not Resolved]
  - Headache [Unknown]
  - Pharyngitis streptococcal [Not Recovered/Not Resolved]
  - Oral discomfort [Unknown]
  - Chest discomfort [Not Recovered/Not Resolved]
  - Pruritus [Not Recovered/Not Resolved]
  - Neck pain [Unknown]
  - Gingival pain [Unknown]
  - Respiratory tract congestion [Not Recovered/Not Resolved]
  - Oropharyngeal pain [Not Recovered/Not Resolved]
  - Blood pressure increased [Unknown]
  - Hypotension [Not Recovered/Not Resolved]
  - Disease recurrence [Not Recovered/Not Resolved]
  - Urinary tract infection [Not Recovered/Not Resolved]
  - Cardiac murmur [Unknown]
  - Chest discomfort [Unknown]
  - Oral candidiasis [Unknown]
  - Nasal congestion [Not Recovered/Not Resolved]
  - Oral fungal infection [Unknown]
  - Hypoaesthesia [Not Recovered/Not Resolved]
  - COVID-19 [Not Recovered/Not Resolved]
  - Cardiac flutter [Not Recovered/Not Resolved]
  - Malaise [Unknown]
  - Gastrooesophageal reflux disease [Not Recovered/Not Resolved]
  - Dehydration [Not Recovered/Not Resolved]
  - Feeling hot [Not Recovered/Not Resolved]
  - Rhinorrhoea [Not Recovered/Not Resolved]
  - Facial pain [Unknown]

NARRATIVE: CASE EVENT DATE: 2020
